FAERS Safety Report 6274735-2 (Version None)
Quarter: 2009Q3

REPORT INFORMATION
  Report Type: 
  Country: None (occurrence: None)
  Receive Date: 20090721
  Receipt Date: 20090709
  Transmission Date: 20100115
  Serious: Yes (Congenital Anomaly, Other)
  Sender: FDA-Public Use
  Company Number: US-RANBAXY-2009US-25570

PATIENT

DRUGS (1)
  1. NORTRIPTYLINE HCL [Suspect]
     Indication: DRUG USE FOR UNKNOWN INDICATION
     Dosage: UNK, UNK
     Route: 015

REACTIONS (15)
  - ATTENTION DEFICIT/HYPERACTIVITY DISORDER [None]
  - BRADYCARDIA [None]
  - BREECH PRESENTATION [None]
  - CAESAREAN SECTION [None]
  - CLINODACTYLY [None]
  - CONGENITAL FACIAL NERVE HYPOPLASIA [None]
  - CONGENITAL NOSE MALFORMATION [None]
  - CRANIOSYNOSTOSIS [None]
  - CYTOGENETIC ABNORMALITY [None]
  - DEAFNESS NEUROSENSORY [None]
  - GASTROOESOPHAGEAL REFLUX DISEASE [None]
  - GENERALISED ANXIETY DISORDER [None]
  - HIGH ARCHED PALATE [None]
  - JAUNDICE [None]
  - JAUNDICE NEONATAL [None]
